FAERS Safety Report 7988664-7 (Version None)
Quarter: 2011Q4

REPORT INFORMATION
  Report Type: 
  Country: None (occurrence: None)
  Receive Date: 20111218
  Receipt Date: 20111205
  Transmission Date: 20120403
  Serious: Yes (Other)
  Sender: FDA-Public Use
  Company Number: US-ELI_LILLY_AND_COMPANY-US201112001477

PATIENT
  Sex: Male
  Weight: 82 kg

DRUGS (6)
  1. EFFEXOR [Concomitant]
     Dosage: UNK
     Dates: end: 20110101
  2. LEXAPRO [Concomitant]
     Dosage: 20 MG, UNK
     Dates: end: 20110101
  3. WELLBUTRIN [Concomitant]
     Dosage: 300 MG, BID
     Dates: start: 20110101
  4. ADDERALL 5 [Concomitant]
     Dosage: 50 MG, UNK
     Dates: end: 20110101
  5. ZYPREXA [Suspect]
     Dosage: UNK
     Dates: end: 20110101
  6. AMBIEN [Concomitant]
     Dosage: UNK
     Dates: end: 20110101

REACTIONS (2)
  - STRESS [None]
  - DEPRESSION SUICIDAL [None]
